FAERS Safety Report 4599391-0 (Version None)
Quarter: 2005Q1

REPORT INFORMATION
  Report Type: 
  Country: None (occurrence: None)
  Receive Date: 20050303
  Receipt Date: 20050303
  Transmission Date: 20050727
  Serious: No
  Sender: FDA-Public Use
  Company Number: None

PATIENT
  Age: 81 Year
  Sex: Female
  Weight: 69 kg

DRUGS (1)
  1. INTRALIPID 10% [Suspect]
     Indication: GASTROINTESTINAL DISORDER
     Dosage: 50 MLS/HOUR DAILY FOR 10 H OTHER
     Route: 050
     Dates: start: 20050225, end: 20050227

REACTIONS (1)
  - LIVER FUNCTION TEST ABNORMAL [None]
